FAERS Safety Report 8132969-6 (Version None)
Quarter: 2012Q1

REPORT INFORMATION
  Report Type: 
  Country: None (occurrence: None)
  Receive Date: 20120213
  Receipt Date: 20120210
  Transmission Date: 20120608
  Serious: Yes (Hospitalization)
  Sender: FDA-Public Use
  Company Number: DE-ROCHE-689126

PATIENT
  Sex: Female
  Weight: 53 kg

DRUGS (3)
  1. MYCOPHENOLATE MOFETIL (CELLCEPT) [Suspect]
     Dosage: DOSE REDUCED
     Route: 048
     Dates: start: 20100225, end: 20100226
  2. CYCLOSPORINE [Concomitant]
     Dates: start: 20100114, end: 20100301
  3. MYCOPHENOLATE MOFETIL (CELLCEPT) [Suspect]
     Indication: PROPHYLAXIS AGAINST TRANSPLANT REJECTION
     Dosage: LAST DOSE PRIOR TO SAE: 06 FEB 2010.
     Route: 048
     Dates: start: 20100114, end: 20100206

REACTIONS (2)
  - PYREXIA [None]
  - INFECTION [None]
